FAERS Safety Report 13911515 (Version 1)
Quarter: 2017Q3

REPORT INFORMATION
  Report Type: Spontaneous
  Country: US (occurrence: US)
  Receive Date: 20170828
  Receipt Date: 20170828
  Transmission Date: 20171127
  Serious: No
  Sender: FDA-Public Use
  Company Number: US-ROCHE-1143146

PATIENT
  Sex: Male
  Weight: 31.4 kg

DRUGS (2)
  1. NUTROPIN AQ [Suspect]
     Active Substance: SOMATROPIN
     Indication: GROWTH HORMONE DEFICIENCY
     Route: 058
     Dates: start: 19960923
  2. NUTROPIN AQ [Suspect]
     Active Substance: SOMATROPIN
     Route: 030
     Dates: start: 20001106

REACTIONS (3)
  - Growth retardation [Unknown]
  - Decreased appetite [Unknown]
  - Delayed puberty [Unknown]
